FAERS Safety Report 7389448-3 (Version None)
Quarter: 2011Q2

REPORT INFORMATION
  Report Type: 
  Country: None (occurrence: None)
  Receive Date: 20110401
  Receipt Date: 20110329
  Transmission Date: 20111010
  Serious: Yes (Other)
  Sender: FDA-Public Use
  Company Number: SE-BRISTOL-MYERS SQUIBB COMPANY-15641202

PATIENT
  Sex: Female

DRUGS (1)
  1. ORENCIA [Suspect]
     Indication: RHEUMATOID ARTHRITIS
     Dosage: TOTAL:4 INFUSIONS
     Dates: start: 20110101

REACTIONS (3)
  - HYPERGLYCAEMIA [None]
  - EYE HAEMORRHAGE [None]
  - GINGIVAL BLEEDING [None]
